FAERS Safety Report 5138657-2 (Version None)
Quarter: 2006Q4

REPORT INFORMATION
  Report Type: 
  Country: None (occurrence: None)
  Receive Date: 20061030
  Receipt Date: 20060823
  Transmission Date: 20070319
  Serious: Yes (Death, Life-Threatening, Hospitalization)
  Sender: FDA-Public Use
  Company Number: BE-AMGEN-UK191024

PATIENT
  Sex: Male

DRUGS (1)
  1. PANITUMUMAB [Suspect]
     Indication: NEOPLASM MALIGNANT
     Route: 041
     Dates: start: 20060404, end: 20060516

REACTIONS (4)
  - DEATH [None]
  - DRUG TOXICITY [None]
  - NECROSIS [None]
  - TONGUE DISORDER [None]
